FAERS Safety Report 5337640-1 (Version None)
Quarter: 2007Q2

REPORT INFORMATION
  Report Type: 
  Country: None (occurrence: None)
  Receive Date: 20070529
  Receipt Date: 20070519
  Transmission Date: 20071010
  Serious: Yes (Hospitalization)
  Sender: FDA-Public Use
  Company Number: BR-ABBOTT-07P-020-0368984-00

PATIENT
  Age: 53 Year
  Sex: Female
  Weight: 55 kg

DRUGS (7)
  1. HUMIRA [Suspect]
     Indication: RHEUMATOID ARTHRITIS
     Route: 058
     Dates: start: 20051101
  2. PREDNISONE TAB [Concomitant]
     Indication: RHEUMATOID ARTHRITIS
  3. CELECOXIB [Concomitant]
     Indication: RHEUMATOID ARTHRITIS
  4. PROPHAM [Concomitant]
     Indication: RHEUMATOID ARTHRITIS
  5. METHOTREXATE [Concomitant]
     Indication: RHEUMATOID ARTHRITIS
  6. ALENDRONATE SODIUM [Concomitant]
     Indication: OSTEOPOROSIS
  7. ENALAPRIL MALEATE [Concomitant]
     Indication: HYPERTENSION

REACTIONS (3)
  - ARTHRALGIA [None]
  - INJECTION SITE PAIN [None]
  - JOINT DISLOCATION [None]
